FAERS Safety Report 5360344-6 (Version None)
Quarter: 2007Q2

REPORT INFORMATION
  Report Type: 
  Country: None (occurrence: None)
  Receive Date: 20070618
  Receipt Date: 20070608
  Transmission Date: 20071010
  Serious: Yes (Death, Life-Threatening, Hospitalization)
  Sender: FDA-Public Use
  Company Number: FR-AMGEN-UK228870

PATIENT
  Sex: Male

DRUGS (13)
  1. ARANESP [Suspect]
     Indication: ANAEMIA
     Route: 058
     Dates: start: 20070420, end: 20070420
  2. BEZAFIBRATE [Suspect]
     Route: 048
  3. PREVISCAN [Concomitant]
  4. ADANCOR [Concomitant]
  5. PREDNISONE TAB [Concomitant]
  6. INIPOMP [Concomitant]
  7. ROCEPHIN [Concomitant]
     Dates: start: 20070411
  8. OFLOCET [Concomitant]
     Dates: start: 20070411, end: 20070413
  9. OROKEN [Concomitant]
     Dates: start: 20070413, end: 20070417
  10. AUGMENTIN '125' [Concomitant]
  11. ERYTHROCINE [Concomitant]
     Dates: start: 20070417, end: 20070421
  12. CIFLOX [Concomitant]
  13. CORTICOSTEROIDS [Concomitant]

REACTIONS (5)
  - DEATH [None]
  - DYSPNOEA [None]
  - HYPERCAPNIA [None]
  - HYPOXIA [None]
  - LUNG DISORDER [None]
